FAERS Safety Report 23664295 (Version 1)
Quarter: 2024Q1

REPORT INFORMATION
  Report Type: Report from Study
  Country: HU (occurrence: HU)
  Receive Date: 20240322
  Receipt Date: 20240322
  Transmission Date: 20240410
  Serious: Yes (Life-Threatening, Hospitalization)
  Sender: FDA-Public Use
  Company Number: HU-AstraZeneca-2024A058505

PATIENT
  Sex: Male

DRUGS (1)
  1. SYNAGIS [Suspect]
     Active Substance: PALIVIZUMAB
     Indication: Bronchiolitis
     Route: 030

REACTIONS (4)
  - Pyrexia [Unknown]
  - Bronchiolitis [Unknown]
  - Viral infection [Unknown]
  - Immunisation [Unknown]
